FAERS Safety Report 11160798 (Version 1)
Quarter: 2015Q2

REPORT INFORMATION
  Report Type: Spontaneous
  Country: US (occurrence: US)
  Receive Date: 20150604
  Receipt Date: 20150604
  Transmission Date: 20150821
  Serious: No
  Sender: FDA-Public Use
  Company Number: US-SA-2014SA064085

PATIENT
  Age: 73 Year
  Sex: Male

DRUGS (2)
  1. LANTUS SOLOSTAR [Suspect]
     Active Substance: INSULIN GLARGINE
     Indication: TYPE 2 DIABETES MELLITUS
     Dosage: ONCE A DAY DOSE:20 UNIT(S)
     Route: 065
     Dates: start: 201311
  2. SOLOSTAR [Concomitant]
     Active Substance: DEVICE
     Dates: start: 201311

REACTIONS (3)
  - Arthropathy [Unknown]
  - Fall [Unknown]
  - Gait disturbance [Unknown]
